FAERS Safety Report 22378133 (Version 3)
Quarter: 2024Q3

REPORT INFORMATION
  Report Type: Spontaneous
  Country: US (occurrence: US)
  Receive Date: 20230529
  Receipt Date: 20240724
  Transmission Date: 20241016
  Serious: No
  Sender: SANOFI AVENTIS
  Company Number: US-SA-SAC20230526000279

PATIENT
  Age: 39 Year
  Sex: Female

DRUGS (6)
  1. DUPIXENT [Suspect]
     Active Substance: DUPILUMAB
     Indication: Eosinophilic oesophagitis
     Dosage: 300 MG, QW
     Route: 058
     Dates: start: 20230308
  2. GABAPENTIN [Concomitant]
     Active Substance: GABAPENTIN
  3. ACETAMINOPHEN\HYDROCODONE [Concomitant]
     Active Substance: ACETAMINOPHEN\HYDROCODONE
  4. IRON [Concomitant]
     Active Substance: IRON
  5. RENFLEXIS [Concomitant]
     Active Substance: INFLIXIMAB-ABDA
  6. COSENTYX [Concomitant]
     Active Substance: SECUKINUMAB

REACTIONS (4)
  - Impaired quality of life [Unknown]
  - Injection site reaction [Unknown]
  - Drug ineffective [Unknown]
  - Product dose omission in error [Unknown]

NARRATIVE: CASE EVENT DATE: 20230101
